FAERS Safety Report 4715670-8 (Version None)
Quarter: 2005Q3

REPORT INFORMATION
  Report Type: 
  Country: None (occurrence: None)
  Receive Date: 20050715
  Receipt Date: 20050715
  Transmission Date: 20060218
  Serious: Yes (Death)
  Sender: FDA-Public Use
  Company Number: None

PATIENT
  Sex: Male
  Weight: 64.8644 kg

DRUGS (12)
  1. CEFTAZIDIME SODIUM [Suspect]
     Indication: OSTEOMYELITIS
     Dosage: 1 GM ONCE IV
     Route: 042
     Dates: start: 20050612, end: 20050613
  2. CEFTRIAXONE [Suspect]
     Indication: OSTEOMYELITIS
     Dosage: 1 GM Q24 IV
     Route: 042
     Dates: start: 20050612, end: 20050613
  3. CEFTRIAXONE [Suspect]
     Dosage: 1 GM Q 24 IV
     Route: 042
     Dates: start: 20050610, end: 20050612
  4. GABAPENTIN [Concomitant]
  5. HEPARIN [Concomitant]
  6. LINEZOLID [Concomitant]
  7. METOPROLOL [Concomitant]
  8. METRONIDAZOLE [Concomitant]
  9. APAP TAB [Concomitant]
  10. LOPERAMIDE HCL [Concomitant]
  11. OXYCODONE HCL [Concomitant]
  12. NYSTATIN [Concomitant]

REACTIONS (14)
  - BLOOD CULTURE POSITIVE [None]
  - CARDIO-RESPIRATORY ARREST [None]
  - CLOSTRIDIUM COLITIS [None]
  - HYPOTENSION [None]
  - INFECTION [None]
  - LIVER FUNCTION TEST ABNORMAL [None]
  - NEUTROPENIA [None]
  - OCULOCEPHALOGYRIC REFLEX ABSENT [None]
  - PULSE ABSENT [None]
  - PUPILLARY REFLEX IMPAIRED [None]
  - PYREXIA [None]
  - STEVENS-JOHNSON SYNDROME [None]
  - TOXIC EPIDERMAL NECROLYSIS [None]
  - UNRESPONSIVE TO PAIN STIMULI [None]
